FAERS Safety Report 5654974-1 (Version None)
Quarter: 2008Q1

REPORT INFORMATION
  Report Type: 
  Country: None (occurrence: None)
  Receive Date: 20080307
  Receipt Date: 20071003
  Transmission Date: 20080703
  Serious: No
  Sender: FDA-Public Use
  Company Number: A0685928A

PATIENT
  Age: 66 Year
  Sex: Female

DRUGS (3)
  1. REQUIP [Suspect]
     Indication: RESTLESS LEGS SYNDROME
     Dosage: .5MG PER DAY
     Route: 048
     Dates: start: 20070901
  2. FLUOXETINE [Concomitant]
  3. ESTRADIOL [Concomitant]

REACTIONS (1)
  - RASH MACULAR [None]
